FAERS Safety Report 16425946 (Version 1)
Quarter: 2019Q2

REPORT INFORMATION
  Report Type: Spontaneous
  Country: DE (occurrence: DE)
  Receive Date: 20190613
  Receipt Date: 20190613
  Transmission Date: 20190711
  Serious: Yes (Death, Other)
  Sender: FDA-Public Use
  Company Number: DE-MYLANLABS-2019M1054185

PATIENT
  Age: 74 Year
  Sex: Female

DRUGS (1)
  1. METHOTREXATE. [Suspect]
     Active Substance: METHOTREXATE
     Indication: RHEUMATOID ARTHRITIS
     Dosage: 10 MG, DAILY
     Route: 048

REACTIONS (5)
  - Accidental overdose [Fatal]
  - Rash [Unknown]
  - Pancytopenia [Unknown]
  - Toxicity to various agents [Unknown]
  - Pneumonia [Fatal]

NARRATIVE: CASE EVENT DATE: 20000101
